FAERS Safety Report 26174202 (Version 1)
Quarter: 2025Q4

REPORT INFORMATION
  Report Type: Spontaneous
  Country: US (occurrence: None)
  Receive Date: 20251217
  Receipt Date: 20251217
  Transmission Date: 20260118
  Serious: Yes (Other)
  Sender: FDA-CTU
  Company Number: None

PATIENT
  Age: 19 Year
  Sex: Female

DRUGS (1)
  1. KESIMPTA [Suspect]
     Active Substance: OFATUMUMAB
     Indication: Relapsing-remitting multiple sclerosis
     Dosage: 20MG ONCE WEEKLY FOR WEEKS 0, 1, 2 AND 4

REACTIONS (6)
  - Dyspnoea [None]
  - Dysphagia [None]
  - Headache [None]
  - Pyrexia [None]
  - Chills [None]
  - Dizziness [None]
